FAERS Safety Report 6157734-0 (Version None)
Quarter: 2009Q2

REPORT INFORMATION
  Report Type: 
  Country: None (occurrence: None)
  Receive Date: 20090414
  Receipt Date: 20090330
  Transmission Date: 20091009
  Serious: Yes (Hospitalization)
  Sender: FDA-Public Use
  Company Number: 2008AL010323

PATIENT
  Age: 59 Year
  Sex: Male

DRUGS (10)
  1. MINOXIDIL EXTRA STRENGTH (FOR MEN) [Suspect]
     Indication: ALOPECIA
     Dosage: 5 PCT; BID; TOP
     Route: 061
     Dates: start: 20080809, end: 20080820
  2. METOPROLOL SUCCINATE [Concomitant]
  3. ASPIRIN [Concomitant]
  4. NITROGLYCERIN [Concomitant]
  5. LIPITOR [Concomitant]
  6. COZAAR [Concomitant]
  7. ATIVAN [Concomitant]
  8. COREG [Concomitant]
  9. CELEXA [Concomitant]
  10. OMEPRAZOLE [Concomitant]

REACTIONS (13)
  - ADJUSTMENT DISORDER [None]
  - ANXIETY [None]
  - CONVULSION [None]
  - DEPRESSED MOOD [None]
  - DISTURBANCE IN ATTENTION [None]
  - DIZZINESS [None]
  - HOT FLUSH [None]
  - HYPERTENSION [None]
  - IDIOSYNCRATIC DRUG REACTION [None]
  - LOSS OF EMPLOYMENT [None]
  - MYOCARDIAL INFARCTION [None]
  - STRESS AT WORK [None]
  - VISION BLURRED [None]
